FAERS Safety Report 6384398-3 (Version None)
Quarter: 2009Q4

REPORT INFORMATION
  Report Type: 
  Country: None (occurrence: None)
  Receive Date: 20091001
  Receipt Date: 20090924
  Transmission Date: 20100525
  Serious: Yes (Death)
  Sender: FDA-Public Use
  Company Number: FR-PFIZER INC-2008020813

PATIENT
  Sex: Female
  Weight: 41 kg

DRUGS (9)
  1. SUNITINIB MALATE [Suspect]
     Indication: BREAST CANCER
     Dosage: 37.5 MG, 1X/DAY
     Dates: start: 20071222, end: 20080215
  2. CAPECITABINE [Suspect]
     Indication: BREAST CANCER
     Dosage: 2650 MG, 1X/DAY
     Dates: start: 20071222, end: 20080215
  3. FOSAMAX [Concomitant]
     Route: 048
     Dates: start: 19970101, end: 20080201
  4. LEVOTHYROXINE SODIUM [Concomitant]
     Route: 048
     Dates: start: 19970101, end: 20080201
  5. GAVISCON [Concomitant]
     Route: 048
     Dates: start: 20050101, end: 20080201
  6. PRAZEPAM [Concomitant]
     Route: 048
     Dates: start: 20070601, end: 20080201
  7. ZOLPIDEM [Concomitant]
     Route: 048
     Dates: start: 19970101, end: 20080201
  8. GLYCOTHYMOLIN [Concomitant]
     Route: 048
     Dates: start: 20080115, end: 20080220
  9. SODIUM BICARBONATE IN PLASTIC CONTAINER [Concomitant]
     Route: 048
     Dates: start: 20080115, end: 20080220

REACTIONS (2)
  - BREAST CANCER [None]
  - DISEASE PROGRESSION [None]
